FAERS Safety Report 14812514 (Version 4)
Quarter: 2018Q3

REPORT INFORMATION
  Report Type: Spontaneous
  Country: US (occurrence: US)
  Receive Date: 20180425
  Receipt Date: 20180731
  Transmission Date: 20181010
  Serious: Yes (Hospitalization, Other)
  Sender: FDA-Public Use
  Company Number: US-009507513-1504USA016359

PATIENT
  Age: 69 Year
  Sex: Male
  Weight: 133 kg

DRUGS (6)
  1. ZOCOR [Interacting]
     Active Substance: SIMVASTATIN
     Dosage: 40 MG, DAILY
  2. LEVOFLOXACIN. [Suspect]
     Active Substance: LEVOFLOXACIN
     Dosage: 750 MG, DAILY
     Route: 048
  3. CUBICIN [Interacting]
     Active Substance: DAPTOMYCIN
     Dosage: 6 MG/KG, QD
     Route: 042
  4. CUBICIN [Interacting]
     Active Substance: DAPTOMYCIN
     Dosage: 680 MG, QD
     Route: 042
  5. CUBICIN [Suspect]
     Active Substance: DAPTOMYCIN
     Dosage: 900 MG, QD
     Route: 042
  6. CUBICIN [Interacting]
     Active Substance: DAPTOMYCIN
     Dosage: 8 MG/KG, QD
     Route: 042

REACTIONS (2)
  - Rhabdomyolysis [Recovered/Resolved]
  - Drug interaction [Recovered/Resolved]
